FAERS Safety Report 14229520 (Version 1)
Quarter: 2017Q4

REPORT INFORMATION
  Report Type: Report from Study
  Country: US (occurrence: US)
  Receive Date: 20171128
  Receipt Date: 20171128
  Transmission Date: 20180321
  Serious: Yes (Other)
  Sender: FDA-Public Use
  Company Number: US-ROCHE-2032497

PATIENT

DRUGS (16)
  1. CYCLOPHOSPHAMIDE. [Suspect]
     Active Substance: CYCLOPHOSPHAMIDE
     Indication: NON-HODGKIN^S LYMPHOMA
  2. ETOPOSIDE. [Suspect]
     Active Substance: ETOPOSIDE
     Indication: LYMPHOMA AIDS RELATED
     Route: 042
  3. CYCLOPHOSPHAMIDE. [Suspect]
     Active Substance: CYCLOPHOSPHAMIDE
     Indication: LYMPHOMA AIDS RELATED
     Route: 042
  4. DIDANOSINE. [Suspect]
     Active Substance: DIDANOSINE
     Indication: LYMPHOMA AIDS RELATED
     Route: 048
  5. DIDANOSINE. [Suspect]
     Active Substance: DIDANOSINE
     Indication: NON-HODGKIN^S LYMPHOMA
  6. ALLOPURINOL. [Concomitant]
     Active Substance: ALLOPURINOL
     Route: 065
  7. SAQUINAVIR [Suspect]
     Active Substance: SAQUINAVIR
     Indication: LYMPHOMA AIDS RELATED
     Route: 048
  8. DOXORUBICIN [Suspect]
     Active Substance: DOXORUBICIN
     Indication: LYMPHOMA AIDS RELATED
     Route: 042
  9. DOXORUBICIN [Suspect]
     Active Substance: DOXORUBICIN
     Indication: NON-HODGKIN^S LYMPHOMA
  10. FILGRASTIM [Concomitant]
     Active Substance: FILGRASTIM
     Route: 058
  11. STAVUDINE. [Suspect]
     Active Substance: STAVUDINE
     Indication: LYMPHOMA AIDS RELATED
     Route: 048
  12. SULFAMETHOXAZOLE/TRIMETHOPRIM [Concomitant]
     Active Substance: SULFAMETHOXAZOLE\TRIMETHOPRIM
     Dosage: TRIMETHOPRIM 160MG/SULFAMETHOXAZOLE 800 MG DAILY
     Route: 048
  13. SAQUINAVIR [Suspect]
     Active Substance: SAQUINAVIR
     Indication: NON-HODGKIN^S LYMPHOMA
  14. ETOPOSIDE. [Suspect]
     Active Substance: ETOPOSIDE
     Indication: NON-HODGKIN^S LYMPHOMA
  15. STAVUDINE. [Suspect]
     Active Substance: STAVUDINE
     Indication: NON-HODGKIN^S LYMPHOMA
  16. FLUCONAZOLE. [Concomitant]
     Active Substance: FLUCONAZOLE
     Route: 048

REACTIONS (1)
  - Aspartate aminotransferase increased [Unknown]
